FAERS Safety Report 4504576-5 (Version None)
Quarter: 2004Q4

REPORT INFORMATION
  Report Type: 
  Country: None (occurrence: None)
  Receive Date: 20041118
  Receipt Date: 20041108
  Transmission Date: 20050328
  Serious: Yes (Death)
  Sender: FDA-Public Use
  Company Number: PHBS2004AU15138

PATIENT
  Age: 48 Year
  Sex: Male

DRUGS (1)
  1. THIORIDAZINE HCL [Suspect]
     Route: 065

REACTIONS (1)
  - BRONCHOPNEUMONIA [None]
